FAERS Safety Report 6248390-1 (Version None)
Quarter: 2009Q2

REPORT INFORMATION
  Report Type: 
  Country: None (occurrence: None)
  Receive Date: 20090629
  Receipt Date: 20090623
  Transmission Date: 20091009
  Serious: Yes (Death, Hospitalization)
  Sender: FDA-Public Use
  Company Number: PHEH2009US04710

PATIENT
  Sex: Female

DRUGS (13)
  1. EXJADE [Suspect]
     Indication: IRON OVERLOAD
     Dosage: 1000 MG, QD
     Route: 048
     Dates: start: 20090419, end: 20090512
  2. REVLIMID [Concomitant]
     Dosage: 5 MG, QD
  3. LACTINEX [Concomitant]
     Dosage: 3, TID
  4. OSCAL 500-D [Concomitant]
     Dosage: 1, QID
  5. POTASSIUM CHLORIDE [Concomitant]
     Dosage: 20 MEQ, QD
  6. ATENOLOL [Concomitant]
     Dosage: 25 MG, QD
  7. LORTAB [Concomitant]
     Dosage: 1, Q4PRN
  8. SYNTHROID [Concomitant]
     Dosage: 75 UG, QD
  9. LIPITOR [Concomitant]
     Dosage: 10 MG, QD
  10. PAROXETINE HCL [Concomitant]
     Dosage: 20 MG, QD
  11. AMLODIPINE [Concomitant]
     Dosage: 5 MG, QD
  12. BONIVA [Concomitant]
     Dosage: 150 MG, QMO
  13. MORPHINE SULFATE [Concomitant]
     Dosage: UNK, BID

REACTIONS (23)
  - ALANINE AMINOTRANSFERASE INCREASED [None]
  - ANOREXIA [None]
  - ASPARTATE AMINOTRANSFERASE INCREASED [None]
  - ASTHENIA [None]
  - BLOOD ALBUMIN DECREASED [None]
  - BLOOD ALKALINE PHOSPHATASE INCREASED [None]
  - BLOOD BILIRUBIN INCREASED [None]
  - BLOOD UREA INCREASED [None]
  - CONFUSIONAL STATE [None]
  - HAEMATOCRIT DECREASED [None]
  - HEPATOBILIARY DISEASE [None]
  - IRON OVERLOAD [None]
  - JAUNDICE [None]
  - LETHARGY [None]
  - MALIGNANT NEOPLASM PROGRESSION [None]
  - METASTASES TO SPINE [None]
  - MYELODYSPLASTIC SYNDROME TRANSFORMATION [None]
  - MYELOPROLIFERATIVE DISORDER [None]
  - PANCYTOPENIA [None]
  - RENAL FAILURE [None]
  - RENAL MASS [None]
  - SPLENOMEGALY [None]
  - THROMBOCYTOPENIA [None]
